FAERS Safety Report 15256765 (Version 1)
Quarter: 2018Q3

REPORT INFORMATION
  Report Type: Spontaneous
  Country: US (occurrence: US)
  Receive Date: 20180808
  Receipt Date: 20180808
  Transmission Date: 20181010
  Serious: No
  Sender: FDA-Public Use
  Company Number: US-ASTRAZENECA-2018SE59253

PATIENT
  Age: 74 Year
  Sex: Female

DRUGS (1)
  1. FASENRA [Suspect]
     Active Substance: BENRALIZUMAB
     Indication: ASTHMA
     Dosage: 30UG/ML EVERY FOUR WEEKS
     Route: 058
     Dates: start: 201802

REACTIONS (1)
  - Headache [Not Recovered/Not Resolved]
